FAERS Safety Report 8988501 (Version 2)
Quarter: 2013Q1

REPORT INFORMATION
  Report Type: Spontaneous
  Country: GB (occurrence: None)
  Receive Date: 20121218
  Receipt Date: 20130228
  Transmission Date: 20140127
  Serious: Yes (Hospitalization, Other)
  Sender: FDA-Public Use
  Company Number: HRA-CDB20120324

PATIENT
  Age: 33 Year
  Sex: Female
  Weight: 70 kg

DRUGS (2)
  1. ELLAONE [Suspect]
     Indication: POST COITAL CONTRACEPTION
     Dates: start: 20121009, end: 20121009
  2. BIOTIN [Concomitant]

REACTIONS (4)
  - Exposure during pregnancy [None]
  - Unintended pregnancy [None]
  - Vaginal haemorrhage [None]
  - Abortion spontaneous [None]
